FAERS Safety Report 4914975-5 (Version None)
Quarter: 2006Q1

REPORT INFORMATION
  Report Type: 
  Country: None (occurrence: None)
  Receive Date: 20060215
  Receipt Date: 20060215
  Transmission Date: 20060701
  Serious: Yes (Hospitalization)
  Sender: FDA-Public Use
  Company Number: None

PATIENT
  Sex: Male
  Weight: 78.4723 kg

DRUGS (3)
  1. INSULIN (REGULAR, NPH) [Suspect]
     Indication: DIABETES MELLITUS
     Dosage: 28 UNITS REGULAR  4 UNITS NPH
  2. COREG [Concomitant]
  3. VYTORIN [Concomitant]

REACTIONS (1)
  - HYPOGLYCAEMIA [None]
